FAERS Safety Report 13139019 (Version 1)
Quarter: 2017Q1

REPORT INFORMATION
  Report Type: Spontaneous
  Country: CN (occurrence: CN)
  Receive Date: 20170123
  Receipt Date: 20170123
  Transmission Date: 20170428
  Serious: Yes (Other)
  Sender: FDA-Public Use
  Company Number: CN-NOVOPROD-527409

PATIENT
  Age: 48 Year
  Sex: Male
  Weight: 71 kg

DRUGS (5)
  1. NOVORAPID [Suspect]
     Active Substance: INSULIN ASPART
     Dosage: 26 U, QD (8-8-10 U BEFORE THREE MEALS))
     Route: 058
  2. LANTUS [Concomitant]
     Active Substance: INSULIN GLARGINE
     Indication: BLOOD GLUCOSE INCREASED
     Dosage: 20 U, QD
     Route: 058
     Dates: start: 20161117, end: 20161123
  3. NOVORAPID [Suspect]
     Active Substance: INSULIN ASPART
     Indication: TYPE 2 DIABETES MELLITUS
     Dosage: 30 U, QD (12-8-10 U BEFORE THREE MEALS)
     Route: 058
     Dates: start: 20161119
  4. METFORMIN HYDROCHLORIDE. [Concomitant]
     Active Substance: METFORMIN HYDROCHLORIDE
     Indication: BLOOD GLUCOSE INCREASED
     Dosage: 0.75 G, QD
     Route: 048
     Dates: start: 20161117, end: 20161123
  5. SAXAGLIPTIN [Concomitant]
     Active Substance: SAXAGLIPTIN
     Indication: BLOOD GLUCOSE INCREASED
     Dosage: 5 MG, QD
     Route: 048
     Dates: start: 20161118, end: 20161123

REACTIONS (4)
  - Hypoglycaemia [Recovering/Resolving]
  - Cold sweat [Recovering/Resolving]
  - Palpitations [Recovering/Resolving]
  - Asthenia [Recovering/Resolving]

NARRATIVE: CASE EVENT DATE: 20161120
